FAERS Safety Report 5279434-1 (Version None)
Quarter: 2007Q1

REPORT INFORMATION
  Report Type: 
  Country: None (occurrence: None)
  Receive Date: 20070328
  Receipt Date: 20070315
  Transmission Date: 20070707
  Serious: Yes (Death)
  Sender: FDA-Public Use
  Company Number: DE-ELI_LILLY_AND_COMPANY-DE200703003868

PATIENT
  Age: 44 Year
  Sex: Female

DRUGS (14)
  1. CYMBALTA [Suspect]
     Indication: DEPRESSION
     Dosage: 30 MG, DAILY (1/D)
     Route: 048
     Dates: start: 20061121, end: 20061126
  2. CYMBALTA [Suspect]
     Dosage: 60 MG, DAILY (1/D)
     Route: 048
     Dates: start: 20061127, end: 20061214
  3. BISOHEXAL [Concomitant]
     Dosage: 2.5 MG, DAILY (1/D)
     Route: 048
     Dates: end: 20061214
  4. LEVODOPA [Concomitant]
     Dosage: 62.5 MG, DAILY (1/D)
     Route: 048
     Dates: start: 20061213, end: 20061214
  5. PANTOZOL [Concomitant]
     Dosage: 20 MG, DAILY (1/D)
     Route: 048
     Dates: end: 20061214
  6. SEROQUEL [Concomitant]
     Dosage: 75 MG, DAILY (1/D)
     Route: 048
     Dates: start: 20061108, end: 20061109
  7. SEROQUEL [Concomitant]
     Dosage: 125 MG, DAILY (1/D)
     Route: 048
     Dates: start: 20061110, end: 20061110
  8. SEROQUEL [Concomitant]
     Dosage: 150 MG, DAILY (1/D)
     Route: 048
     Dates: start: 20061111, end: 20061112
  9. SEROQUEL [Concomitant]
     Dosage: 250 MG, DAILY (1/D)
     Route: 048
     Dates: start: 20061113, end: 20061113
  10. SEROQUEL [Concomitant]
     Dosage: 350 MG, DAILY (1/D)
     Route: 048
     Dates: start: 20061114, end: 20061116
  11. SEROQUEL [Concomitant]
     Dosage: 400 MG, DAILY (1/D)
     Route: 048
     Dates: start: 20061117, end: 20061214
  12. RIVOTRIL [Concomitant]
     Dosage: 1.5 MG, DAILY (1/D)
     Route: 048
     Dates: start: 20061121, end: 20061214
  13. ZOP [Concomitant]
     Dosage: 7.5 MG, DAILY (1/D)
     Route: 048
     Dates: start: 20061031, end: 20061119
  14. ZOP [Concomitant]
     Dosage: 11.25 MG, DAILY (1/D)
     Route: 048
     Dates: start: 20061120, end: 20061214

REACTIONS (2)
  - MYOCARDIAL INFARCTION [None]
  - PAROXYSMAL ARRHYTHMIA [None]
